FAERS Safety Report 25754651 (Version 1)
Quarter: 2025Q3

REPORT INFORMATION
  Report Type: Spontaneous
  Country: US (occurrence: US)
  Receive Date: 20250903
  Receipt Date: 20250903
  Transmission Date: 20251021
  Serious: Yes (Life-Threatening, Other)
  Sender: GRIFOLS
  Company Number: US-IGSA-BIG0030944

PATIENT
  Age: 84 Year
  Sex: Male

DRUGS (2)
  1. ALBUMIN (HUMAN) [Suspect]
     Active Substance: ALBUMIN HUMAN
     Indication: Shock
     Route: 065
  2. ALBUMIN (HUMAN) [Suspect]
     Active Substance: ALBUMIN HUMAN
     Indication: Hypoalbuminaemia

REACTIONS (2)
  - Anaphylactic shock [Recovering/Resolving]
  - Rash pruritic [Recovering/Resolving]
